FAERS Safety Report 23156282 (Version 2)
Quarter: 2024Q1

REPORT INFORMATION
  Report Type: Report from Study
  Country: CA (occurrence: CA)
  Receive Date: 20231107
  Receipt Date: 20240201
  Transmission Date: 20240409
  Serious: Yes (Death, Hospitalization, Other)
  Sender: FDA-Public Use
  Company Number: CA-HLS-202302470

PATIENT
  Age: 51 Year
  Sex: Male

DRUGS (2)
  1. CLOZARIL [Suspect]
     Active Substance: CLOZAPINE
     Indication: Product used for unknown indication
     Dosage: STOPPED ON OCT 17
     Route: 048
     Dates: start: 20121119
  2. CLOZARIL [Suspect]
     Active Substance: CLOZAPINE
     Indication: Product used for unknown indication
     Dosage: RESTARTED OCT 24
     Route: 048

REACTIONS (4)
  - Intestinal obstruction [Unknown]
  - Death [Fatal]
  - Therapy interrupted [Recovered/Resolved]
  - Neoplasm malignant [Unknown]

NARRATIVE: CASE EVENT DATE: 20231017
